APPROVED DRUG PRODUCT: LEVONORGESTREL AND ETHINYL ESTRADIOL
Active Ingredient: ETHINYL ESTRADIOL; LEVONORGESTREL
Strength: 0.03MG,0.04MG,0.03MG;0.05MG,0.075MG,0.125MG
Dosage Form/Route: TABLET;ORAL-28
Application: A200248 | Product #001 | TE Code: AB
Applicant: LUPIN LTD
Approved: Nov 19, 2015 | RLD: No | RS: No | Type: RX